FAERS Safety Report 20193479 (Version 1)
Quarter: 2021Q4

REPORT INFORMATION
  Report Type: Spontaneous
  Country: US (occurrence: None)
  Receive Date: 20211215
  Receipt Date: 20211215
  Transmission Date: 20220303
  Serious: Yes (Death)
  Sender: FDA-Public Use
  Company Number: None

PATIENT
  Age: 75 Year
  Sex: Male

DRUGS (1)
  1. IMATINIB MESYLATE [Suspect]
     Active Substance: IMATINIB MESYLATE
     Indication: Brain neoplasm malignant
     Dates: start: 20210624

REACTIONS (2)
  - Disease progression [None]
  - Hospice care [None]

NARRATIVE: CASE EVENT DATE: 20210109
